FAERS Safety Report 17002333 (Version 1)
Quarter: 2019Q4

REPORT INFORMATION
  Report Type: Report from Study
  Country: US (occurrence: US)
  Receive Date: 20191106
  Receipt Date: 20191106
  Transmission Date: 20200122
  Serious: Yes (Hospitalization, Disabling, Other)
  Sender: FDA-Public Use
  Company Number: US-TEVA-2019-US-1132670

PATIENT
  Age: 69 Year
  Sex: Male
  Weight: 81.63 kg

DRUGS (18)
  1. KLOR-CON [Concomitant]
     Active Substance: POTASSIUM CHLORIDE
     Dosage: 10 MEQ
     Dates: start: 20170802
  2. NAPABUCASIN [Suspect]
     Active Substance: NAPABUCASIN
     Dosage: 480 MILLIGRAM DAILY; 240 MG BID
     Route: 048
     Dates: start: 20171113
  3. LOPERAMIDE HCL [Concomitant]
     Active Substance: LOPERAMIDE HYDROCHLORIDE
     Dosage: 2 MG
  4. FOLFIRI [Suspect]
     Active Substance: FLUOROURACIL\IRINOTECAN\LEUCOVORIN
     Indication: COLORECTAL CANCER METASTATIC
     Dosage: 360 MG EVERY 2 WEEKS
     Route: 042
     Dates: start: 20171115, end: 20171115
  5. HYZAAR [Concomitant]
     Active Substance: HYDROCHLOROTHIAZIDE\LOSARTAN POTASSIUM
     Dates: start: 20171108
  6. 5-FLUOROURACIL [Suspect]
     Active Substance: FLUOROURACIL
     Indication: COLORECTAL CANCER METASTATIC
     Dosage: 810 MG EVERY 2 WEEKS
     Dates: start: 20171115, end: 20171115
  7. 5-FLUOROURACIL [Suspect]
     Active Substance: FLUOROURACIL
     Dosage: 4850 EVERY 2 WEEKS
     Route: 042
     Dates: start: 20171115, end: 20171115
  8. LIPITOR [Concomitant]
     Active Substance: ATORVASTATIN CALCIUM
     Dosage: 20 MG
     Dates: start: 20161206
  9. ELIQUIS [Concomitant]
     Active Substance: APIXABAN
     Dosage: 5 MG
     Dates: start: 20171030
  10. ROPINIROL [Concomitant]
     Active Substance: ROPINIROLE
     Dosage: 2 MG
     Dates: start: 20171108
  11. HUMALOG [Concomitant]
     Active Substance: INSULIN LISPRO
  12. LEUCOVORIN. [Suspect]
     Active Substance: LEUCOVORIN
     Indication: COLORECTAL CANCER METASTATIC
     Dosage: 808 MG EVERY 2 WEEKS
     Route: 042
     Dates: start: 20171115, end: 20171115
  13. NEURONTIN [Concomitant]
     Active Substance: GABAPENTIN
     Dates: start: 20171101
  14. INSULIN REGULAR [Concomitant]
     Active Substance: INSULIN NOS
  15. GLUCOPHAGE [Concomitant]
     Active Substance: METFORMIN HYDROCHLORIDE
  16. ZOFRAN [Concomitant]
     Active Substance: ONDANSETRON HYDROCHLORIDE
     Dosage: 8 MG
     Dates: start: 20170923
  17. ASPIRIN. [Concomitant]
     Active Substance: ASPIRIN
     Dosage: 81 MG
     Dates: start: 20100923
  18. LEVEMIR [Concomitant]
     Active Substance: INSULIN DETEMIR

REACTIONS (9)
  - Anaemia [Recovered/Resolved]
  - Pyrexia [Recovered/Resolved]
  - Myocardial necrosis marker increased [Recovered/Resolved]
  - Febrile neutropenia [Recovered/Resolved]
  - Thrombocytopenia [Recovered/Resolved]
  - Diarrhoea [Recovered/Resolved]
  - Mental status changes [Recovered/Resolved]
  - Sepsis [Recovered/Resolved]
  - Hypovolaemia [Recovered/Resolved]

NARRATIVE: CASE EVENT DATE: 20171121
